FAERS Safety Report 17142453 (Version 1)
Quarter: 2019Q4

REPORT INFORMATION
  Report Type: Spontaneous
  Country: DE (occurrence: DE)
  Receive Date: 20191211
  Receipt Date: 20191211
  Transmission Date: 20200122
  Serious: Yes (Other)
  Sender: FDA-Public Use
  Company Number: DE-MYLANLABS-2019M1120366

PATIENT
  Sex: Female

DRUGS (1)
  1. METOPROLOL. [Suspect]
     Active Substance: METOPROLOL
     Indication: PRODUCT USED FOR UNKNOWN INDICATION
     Dosage: UNK
     Route: 065

REACTIONS (14)
  - Diarrhoea [Unknown]
  - Hyperhidrosis [Unknown]
  - Abdominal pain lower [Unknown]
  - Constipation [Unknown]
  - Palpitations [Unknown]
  - Female reproductive tract disorder [Unknown]
  - Abdominal pain upper [Unknown]
  - Headache [Unknown]
  - Nightmare [Unknown]
  - Dyspnoea [Unknown]
  - Muscle spasms [Unknown]
  - Arrhythmia [Unknown]
  - Dizziness [Unknown]
  - Fluid retention [Unknown]
